FAERS Safety Report 18488335 (Version 1)
Quarter: 2020Q4

REPORT INFORMATION
  Report Type: Spontaneous
  Country: CZ (occurrence: CZ)
  Receive Date: 20201111
  Receipt Date: 20201111
  Transmission Date: 20210114
  Serious: Yes (Other)
  Sender: FDA-Public Use
  Company Number: CZ-AMGEN-CZESP2020179078

PATIENT
  Age: 60 Year
  Sex: Male

DRUGS (4)
  1. PANITUMUMAB [Suspect]
     Active Substance: PANITUMUMAB
     Indication: ADENOCARCINOMA OF COLON
     Dosage: UNK UNK, CYCLICAL
     Route: 065
  2. OXALIPLATIN. [Suspect]
     Active Substance: OXALIPLATIN
     Indication: ADENOCARCINOMA OF COLON
     Dosage: UNK
     Route: 065
  3. FOLINIC ACID [CALCIUM FOLINATE] [Suspect]
     Active Substance: LEUCOVORIN CALCIUM
     Indication: ADENOCARCINOMA OF COLON
     Dosage: UNK
     Route: 065
  4. 5-FU [FLUOROURACIL] [Suspect]
     Active Substance: FLUOROURACIL
     Indication: ADENOCARCINOMA OF COLON
     Dosage: UNK
     Route: 065

REACTIONS (7)
  - Pulmonary embolism [Unknown]
  - Neutropenia [Unknown]
  - Therapeutic product effect incomplete [Unknown]
  - Abdominal hernia repair [Unknown]
  - Skin necrosis [Recovered/Resolved]
  - Hypomagnesaemia [Unknown]
  - Skin toxicity [Unknown]

NARRATIVE: CASE EVENT DATE: 2019
